FAERS Safety Report 4313307-3 (Version None)
Quarter: 2004Q1

REPORT INFORMATION
  Report Type: 
  Country: None (occurrence: None)
  Receive Date: 20040305
  Receipt Date: 20040305
  Transmission Date: 20041129
  Serious: Yes (Other)
  Sender: FDA-Public Use
  Company Number: None

PATIENT
  Age: 6 Year
  Sex: Male
  Weight: 22.6799 kg

DRUGS (1)
  1. PEDIAPOPS ORAL ELECTROLYTE MAINTENANCE SOLUTION 2.1 FL OZ POPS, BX OF [Suspect]
     Indication: ELECTROLYTE IMBALANCE
     Dates: start: 20040224

REACTIONS (3)
  - MEDICATION ERROR [None]
  - PHARMACEUTICAL PRODUCT COMPLAINT [None]
  - VOMITING [None]
